FAERS Safety Report 5330919-9 (Version None)
Quarter: 2007Q2

REPORT INFORMATION
  Report Type: 
  Country: None (occurrence: None)
  Receive Date: 20070522
  Receipt Date: 20070507
  Transmission Date: 20071010
  Serious: Yes (Other)
  Sender: FDA-Public Use
  Company Number: JP-ELI_LILLY_AND_COMPANY-JP200705001772

PATIENT
  Age: 65 Year
  Sex: Female

DRUGS (4)
  1. EVISTA [Suspect]
     Dosage: 60 MG, DAILY (1/D)
     Route: 048
     Dates: start: 20070301, end: 20070501
  2. THEO-DUR [Concomitant]
     Indication: ASTHMA
  3. MEPTIN [Concomitant]
     Indication: ASTHMA
  4. ELCITONIN [Concomitant]
     Dates: start: 20070301, end: 20070501

REACTIONS (1)
  - RHABDOMYOLYSIS [None]
